FAERS Safety Report 10829456 (Version 1)
Quarter: 2015Q1

REPORT INFORMATION
  Report Type: Report from Study
  Country: US (occurrence: US)
  Receive Date: 20150219
  Receipt Date: 20150219
  Transmission Date: 20150721
  Serious: Yes (Hospitalization, Other)
  Sender: FDA-Public Use
  Company Number: US-ABBVIE-14P-163-1188469-00

PATIENT
  Age: 66 Year
  Sex: Male

DRUGS (7)
  1. METOPROLOL [Concomitant]
     Active Substance: METOPROLOL
     Indication: HYPERTENSION
     Route: 048
  2. VITAMIN B12 [Concomitant]
     Active Substance: CYANOCOBALAMIN
     Indication: PRODUCT USED FOR UNKNOWN INDICATION
  3. FELODIPINE. [Concomitant]
     Active Substance: FELODIPINE
     Indication: MALABSORPTION
  4. VITAMIN B12 [Concomitant]
     Active Substance: CYANOCOBALAMIN
     Indication: CROHN^S DISEASE
     Dosage: 100 MCG/ML
     Route: 050
  5. FELODIPINE. [Concomitant]
     Active Substance: FELODIPINE
     Indication: HYPERTENSION
     Route: 048
  6. LISINOPRIL. [Concomitant]
     Active Substance: LISINOPRIL
     Indication: HYPERTENSION
     Route: 048
  7. HUMIRA [Suspect]
     Active Substance: ADALIMUMAB
     Indication: CROHN^S DISEASE
     Dates: start: 2008

REACTIONS (7)
  - Pancreatic carcinoma [Unknown]
  - Thrombosis [Unknown]
  - Pancreatitis [Not Recovered/Not Resolved]
  - Knee arthroplasty [Unknown]
  - Lipids increased [Unknown]
  - Knee arthroplasty [Unknown]
  - Liver disorder [Unknown]

NARRATIVE: CASE EVENT DATE: 20101031
